FAERS Safety Report 5392331-6 (Version None)
Quarter: 2007Q3

REPORT INFORMATION
  Report Type: 
  Country: None (occurrence: None)
  Receive Date: 20070720
  Receipt Date: 20070703
  Transmission Date: 20080115
  Serious: Yes (Other)
  Sender: FDA-Public Use
  Company Number: CA-MERCK-0704CAN00101

PATIENT
  Age: 45 Year
  Sex: Male
  Weight: 117 kg

DRUGS (1)
  1. ZETIA [Suspect]
     Indication: HYPERLIPIDAEMIA
     Route: 048

REACTIONS (3)
  - HYPOAESTHESIA [None]
  - MYALGIA [None]
  - MYOSITIS [None]
